FAERS Safety Report 10723314 (Version 3)
Quarter: 2015Q1

REPORT INFORMATION
  Report Type: Spontaneous
  Country: JP (occurrence: JP)
  Receive Date: 20150120
  Receipt Date: 20150212
  Transmission Date: 20150721
  Serious: Yes (Hospitalization, Other)
  Sender: FDA-Public Use
  Company Number: JP-TEVA-535083ISR

PATIENT
  Age: 6 Decade
  Sex: Male
  Weight: 50 kg

DRUGS (2)
  1. CISPLATIN. [Suspect]
     Active Substance: CISPLATIN
     Indication: GASTRIC CANCER STAGE IV
     Dosage: DAY 8
     Route: 065
  2. S-1 [Suspect]
     Active Substance: GIMERACIL\OTERACIL\TEGAFUR
     Indication: GASTRIC CANCER
     Dosage: DAY 1-21
     Route: 065

REACTIONS (1)
  - Gastric perforation [Unknown]

NARRATIVE: CASE EVENT DATE: 2010
